FAERS Safety Report 13495592 (Version 1)
Quarter: 2017Q2

REPORT INFORMATION
  Report Type: Spontaneous
  Country: US (occurrence: US)
  Receive Date: 20170427
  Receipt Date: 20170427
  Transmission Date: 20170830
  Serious: No
  Sender: FDA-Public Use
  Company Number: None

PATIENT
  Sex: Female

DRUGS (1)
  1. AVONEX [Suspect]
     Active Substance: INTERFERON BETA-1A
     Indication: MULTIPLE SCLEROSIS
     Dosage: 30MCG/.5M ONCE WEEKLY INTRAMUSCULARLY
     Route: 030
     Dates: start: 20161008

REACTIONS (3)
  - Stress [None]
  - Therapy cessation [None]
  - Death of relative [None]
